FAERS Safety Report 24028229 (Version 1)
Quarter: 2024Q2

REPORT INFORMATION
  Report Type: Spontaneous
  Country: HR (occurrence: HR)
  Receive Date: 20240628
  Receipt Date: 20240628
  Transmission Date: 20240716
  Serious: Yes (Life-Threatening, Other)
  Sender: FDA-Public Use
  Company Number: None

PATIENT
  Sex: Male

DRUGS (2)
  1. ZOLPIDEM TARTRATE [Suspect]
     Active Substance: ZOLPIDEM TARTRATE
     Dosage: 80 MG, QD
     Route: 048
     Dates: start: 20240502, end: 20240502
  2. DIAZEPAM [Suspect]
     Active Substance: DIAZEPAM
     Dosage: 450 MG, QD
     Route: 048
     Dates: start: 20240502, end: 20240502

REACTIONS (5)
  - Suicide attempt [Unknown]
  - Intentional overdose [Unknown]
  - No adverse event [Unknown]
  - Somnolence [Unknown]
  - Aggression [Unknown]

NARRATIVE: CASE EVENT DATE: 20240502
